FAERS Safety Report 9801769 (Version 3)
Quarter: 2014Q1

REPORT INFORMATION
  Report Type: Spontaneous
  Country: US (occurrence: US)
  Receive Date: 20140107
  Receipt Date: 20140210
  Transmission Date: 20141002
  Serious: Yes (Hospitalization)
  Sender: FDA-Public Use
  Company Number: US-GLAXOSMITHKLINE-A1055465A

PATIENT
  Age: 74 Year
  Sex: Female

DRUGS (2)
  1. ADVAIR [Suspect]
     Indication: PRODUCT USED FOR UNKNOWN INDICATION
     Route: 065
     Dates: start: 20071201
  2. OXYGEN [Concomitant]

REACTIONS (6)
  - Nervous system disorder [Unknown]
  - Bone disorder [Unknown]
  - Fall [Unknown]
  - Fractured coccyx [Unknown]
  - Nerve injury [Unknown]
  - Surgery [Unknown]
